FAERS Safety Report 20819673 (Version 1)
Quarter: 2022Q2

REPORT INFORMATION
  Report Type: Spontaneous
  Country: US (occurrence: US)
  Receive Date: 20220512
  Receipt Date: 20220512
  Transmission Date: 20220720
  Serious: No
  Sender: FDA-Public Use
  Company Number: US-AMNEAL PHARMACEUTICALS-2022-AMRX-00725

PATIENT
  Age: 61 Year
  Sex: Female

DRUGS (1)
  1. DICLOFENAC SODIUM [Suspect]
     Active Substance: DICLOFENAC SODIUM
     Indication: Arthritis
     Dosage: 1 PERCENT
     Route: 061
     Dates: start: 20220103

REACTIONS (2)
  - Application site burn [Recovered/Resolved with Sequelae]
  - Hordeolum [Unknown]

NARRATIVE: CASE EVENT DATE: 20220101
